FAERS Safety Report 9412314 (Version 1)
Quarter: 2013Q3

REPORT INFORMATION
  Report Type: Spontaneous
  Country: DE (occurrence: DE)
  Receive Date: 20130722
  Receipt Date: 20130722
  Transmission Date: 20140515
  Serious: Yes (Death, Hospitalization)
  Sender: FDA-Public Use
  Company Number: DE-MYLANLABS-2013S1015509

PATIENT
  Age: 78 Year
  Sex: Female

DRUGS (5)
  1. METFORMIN [Suspect]
     Indication: TYPE 2 DIABETES MELLITUS
     Route: 048
  2. ISOSORBIDE DINITRATE [Concomitant]
     Route: 065
  3. RAMIPRIL [Concomitant]
     Route: 065
  4. VERAPAMIL [Concomitant]
     Route: 065
  5. PANTOPRAZOLE [Concomitant]
     Indication: ANTACID THERAPY
     Dosage: STANDARD DOSAGE
     Route: 065

REACTIONS (8)
  - Nausea [Not Recovered/Not Resolved]
  - Abdominal pain upper [Not Recovered/Not Resolved]
  - Diarrhoea [Not Recovered/Not Resolved]
  - Lactic acidosis [Not Recovered/Not Resolved]
  - Circulatory collapse [Fatal]
  - Toxicity to various agents [Fatal]
  - Cardiovascular insufficiency [Not Recovered/Not Resolved]
  - Overdose [Fatal]
